FAERS Safety Report 9988722 (Version 1)
Quarter: 2014Q1

REPORT INFORMATION
  Report Type: Other
  Country: GB (occurrence: GB)
  Receive Date: 20140310
  Receipt Date: 20140310
  Transmission Date: 20141002
  Serious: Yes (Hospitalization, Other)
  Sender: FDA-Public Use
  Company Number: GB-LUPIN PHARMACEUTICALS INC.-E2B_00001762

PATIENT
  Age: 22 Year
  Sex: Female

DRUGS (7)
  1. QUETIAPINE [Suspect]
     Indication: PRODUCT USED FOR UNKNOWN INDICATION
     Route: 048
  2. QUETIAPINE [Suspect]
     Dosage: DOSE TAPERED
     Route: 048
     Dates: end: 20140127
  3. CLOZARIL [Suspect]
     Indication: SCHIZOPHRENIA
     Route: 048
     Dates: start: 20140121, end: 20140127
  4. CLOZARIL [Suspect]
     Indication: BORDERLINE PERSONALITY DISORDER
     Route: 065
  5. AMITRIPTYLINE [Concomitant]
     Indication: DEPRESSION
     Route: 048
  6. HYDROXYZINE [Concomitant]
     Indication: INSOMNIA
     Route: 048
     Dates: start: 20131121
  7. VALPROIC ACID [Concomitant]
     Indication: AFFECTIVE DISORDER
     Route: 048

REACTIONS (3)
  - Epilepsy [Recovered/Resolved]
  - Convulsion [Unknown]
  - Malaise [Unknown]
